FAERS Safety Report 9628348 (Version 3)
Quarter: 2013Q4

REPORT INFORMATION
  Report Type: Spontaneous
  Country: JP (occurrence: JP)
  Receive Date: 20131017
  Receipt Date: 20131025
  Transmission Date: 20140711
  Serious: Yes (Hospitalization)
  Sender: FDA-Public Use
  Company Number: JP-ASTRAZENECA-2013SE72415

PATIENT
  Age: 63 Year
  Sex: Female

DRUGS (3)
  1. NEXIUM [Suspect]
     Indication: HELICOBACTER INFECTION
     Route: 048
     Dates: start: 20130826, end: 20130903
  2. AMOXICILLIN [Suspect]
     Indication: HELICOBACTER INFECTION
     Route: 048
     Dates: start: 20130826, end: 20130903
  3. CLARITHROMYCIN [Suspect]
     Indication: HELICOBACTER INFECTION
     Route: 048
     Dates: start: 20130826, end: 20130903

REACTIONS (3)
  - Hyperthermia [Unknown]
  - Drug eruption [Recovered/Resolved]
  - Diarrhoea [Recovered/Resolved]
